FAERS Safety Report 4507741-6 (Version None)
Quarter: 2004Q4

REPORT INFORMATION
  Report Type: 
  Country: None (occurrence: None)
  Receive Date: 20041018
  Receipt Date: 20040809
  Transmission Date: 20050328
  Serious: No
  Sender: FDA-Public Use
  Company Number: 207070

PATIENT
  Age: 9 Year
  Sex: Male
  Weight: 61 kg

DRUGS (9)
  1. XOLAIR [Suspect]
     Indication: ASTHMA
     Dosage: 375MG , Q2W, SUBCUTANEOUS
     Route: 058
     Dates: start: 20040520
  2. ADVAIR (FLUTICASONE PROPIONATE, SALMETEROL XINAFOATE) [Concomitant]
  3. ASTELIN NASAL SPRAY (AZELASTINE HYDROCHLORIDE) [Concomitant]
  4. ALLEGRA [Concomitant]
  5. SINGULAIR [Concomitant]
  6. PREDNISONE [Concomitant]
  7. PATANOL [Concomitant]
  8. NEXIUM [Concomitant]
  9. XOPENEX [Concomitant]

REACTIONS (2)
  - DIZZINESS [None]
  - NAUSEA [None]
